FAERS Safety Report 5833524-0 (Version None)
Quarter: 2008Q3

REPORT INFORMATION
  Report Type: 
  Country: None (occurrence: None)
  Receive Date: 20080804
  Receipt Date: 20080804
  Transmission Date: 20090109
  Serious: Yes (Life-Threatening, Other)
  Sender: FDA-Public Use
  Company Number: None

PATIENT
  Age: 23 Year
  Sex: Female
  Weight: 41.2773 kg

DRUGS (4)
  1. SUMATRIPTAN 50MG N/A [Suspect]
     Indication: MIGRAINE
     Dosage: 50MG OD PO
     Route: 048
     Dates: start: 20080630, end: 20080701
  2. HUMALOG [Concomitant]
  3. LANCTUS [Concomitant]
  4. VENLAFAXINE HCL EXTENDED-RELEASE [Concomitant]

REACTIONS (1)
  - SUPRAVENTRICULAR TACHYCARDIA [None]
